FAERS Safety Report 14183120 (Version 1)
Quarter: 2017Q4

REPORT INFORMATION
  Report Type: Spontaneous
  Country: BR (occurrence: BR)
  Receive Date: 20171113
  Receipt Date: 20171113
  Transmission Date: 20180321
  Serious: Yes (Other)
  Sender: FDA-Public Use
  Company Number: BR-BAYER-2017-176287

PATIENT
  Age: 25 Year
  Sex: Female
  Weight: 84 kg

DRUGS (3)
  1. MIRENA [Suspect]
     Active Substance: LEVONORGESTREL
     Indication: CONTRACEPTION
     Dosage: 20 MCG/24HR, CONT
     Route: 015
     Dates: start: 20151123, end: 20170906
  2. ALDACTONE [Concomitant]
     Active Substance: SPIRONOLACTONE
     Indication: POLYCYSTIC OVARIES
     Dosage: 100MG
  3. METFORMIN [Concomitant]
     Active Substance: METFORMIN HYDROCHLORIDE
     Dosage: 1G

REACTIONS (8)
  - Ovarian cyst ruptured [Recovered/Resolved]
  - Peritoneal haemorrhage [None]
  - Abdominal pain lower [None]
  - Haemorrhagic ovarian cyst [Recovered/Resolved]
  - Device use issue [None]
  - Inappropriate schedule of drug administration [None]
  - Abdominal pain [Recovered/Resolved]
  - Uterine perforation [Recovered/Resolved]

NARRATIVE: CASE EVENT DATE: 20170906
